FAERS Safety Report 16992728 (Version 4)
Quarter: 2020Q2

REPORT INFORMATION
  Report Type: Report from Study
  Country: DE (occurrence: DE)
  Receive Date: 20191105
  Receipt Date: 20200629
  Transmission Date: 20200713
  Serious: Yes (Hospitalization)
  Sender: FDA-Public Use
  Company Number: DE-ROCHE-2445107

PATIENT
  Age: 67 Year
  Sex: Male

DRUGS (7)
  1. CETIRIZIN [Concomitant]
     Active Substance: CETIRIZINE HYDROCHLORIDE
     Route: 048
  2. PANTOZOL [Concomitant]
     Active Substance: PANTOPRAZOLE SODIUM
     Route: 048
     Dates: start: 20190310
  3. PACLITAXEL. [Suspect]
     Active Substance: PACLITAXEL
     Indication: MALIGNANT NEOPLASM OF UNKNOWN PRIMARY SITE
     Dosage: ON 27/MAY/2020, HE RECEIVED MOST RECENT DOSE OF PACLITAXEL (332.5 UNITS) PRIOR TO SAE ONSET.
     Route: 042
     Dates: start: 20190527
  4. GEMCITABINE. [Suspect]
     Active Substance: GEMCITABINE
     Indication: MALIGNANT NEOPLASM OF UNKNOWN PRIMARY SITE
     Dosage: MOST RECENT DOSE ON 04/OCT/2019
     Route: 042
     Dates: start: 20191004
  5. ATEZOLIZUMAB. [Suspect]
     Active Substance: ATEZOLIZUMAB
     Indication: MALIGNANT NEOPLASM OF UNKNOWN PRIMARY SITE
     Dosage: MOST RECENT DOSE ON 04/OCT/2019
     Route: 041
     Dates: start: 20191004
  6. CARBOPLATIN. [Suspect]
     Active Substance: CARBOPLATIN
     Indication: MALIGNANT NEOPLASM OF UNKNOWN PRIMARY SITE
     Dosage: ON 27/MAY/2019, HE RECEIVED MOST RECENT DOSE OF CARBOPLATIN (493.55 UNITS) PRIOR TO SAE ONSET.
     Route: 042
     Dates: start: 20190527
  7. NOVALGIN (METAMIZOLE SODIUM) [Concomitant]
     Active Substance: METAMIZOLE SODIUM
     Dosage: LIQUID
     Route: 048

REACTIONS (1)
  - Hydronephrosis [Recovered/Resolved]

NARRATIVE: CASE EVENT DATE: 20191011
